FAERS Safety Report 18754102 (Version 1)
Quarter: 2021Q1

REPORT INFORMATION
  Report Type: Report from Study
  Country: None (occurrence: US)
  Receive Date: 20210119
  Receipt Date: 20210119
  Transmission Date: 20210419
  Serious: Yes (Other)
  Sender: FDA-Public Use
  Company Number: US-ABBVIE-21K-163-3731237-00

PATIENT
  Sex: Male

DRUGS (1)
  1. VENCLEXTA [Suspect]
     Active Substance: VENETOCLAX
     Indication: MANTLE CELL LYMPHOMA
     Dosage: WITH FOOD
     Route: 048
     Dates: start: 20180220

REACTIONS (5)
  - Recurrent cancer [Unknown]
  - Memory impairment [Unknown]
  - Off label use [Unknown]
  - Pain in extremity [Unknown]
  - Fatigue [Unknown]
